FAERS Safety Report 8075548-1 (Version None)
Quarter: 2012Q1

REPORT INFORMATION
  Report Type: 
  Country: None (occurrence: None)
  Receive Date: 20120127
  Receipt Date: 20120118
  Transmission Date: 20120608
  Serious: Yes (Hospitalization)
  Sender: FDA-Public Use
  Company Number: IT-BRISTOL-MYERS SQUIBB COMPANY-16359200

PATIENT
  Age: 80 Year
  Sex: Male

DRUGS (11)
  1. NOVORAPID [Concomitant]
     Route: 058
  2. COUMADIN [Suspect]
     Indication: PROPHYLAXIS
     Route: 048
     Dates: start: 20100101, end: 20111212
  3. LERCADIP [Concomitant]
  4. IBUPROFEN [Suspect]
     Indication: ARTHRALGIA
     Dosage: BRUFEN 1 UNIT (NO DOSAGE SPECIFIED)
     Dates: start: 20111126, end: 20111211
  5. NOVOLOG MIX 70/30 [Concomitant]
     Route: 058
  6. LASIX [Concomitant]
  7. TENORMIN [Concomitant]
  8. LOSARTAN POTASSIUM [Concomitant]
  9. SIMVASTATIN [Concomitant]
  10. NITROGLYCERIN [Concomitant]
     Dosage: VENITRIN 5MG PATCH
  11. MEDROL [Suspect]
     Indication: RHEUMATOID ARTHRITIS
     Dates: start: 20090101, end: 20111212

REACTIONS (4)
  - DUODENAL ULCER HAEMORRHAGE [None]
  - RENAL FAILURE CHRONIC [None]
  - SHOCK HAEMORRHAGIC [None]
  - GASTRITIS EROSIVE [None]
